FAERS Safety Report 7048411-2 (Version None)
Quarter: 2010Q4

REPORT INFORMATION
  Report Type: 
  Country: None (occurrence: None)
  Receive Date: 20101014
  Receipt Date: 20101014
  Transmission Date: 20110411
  Serious: Yes (Life-Threatening, Hospitalization)
  Sender: FDA-Public Use
  Company Number: None

PATIENT
  Age: 55 Year
  Sex: Female

DRUGS (1)
  1. DIVALPROEX 50D ER TABS W725 - 500MG [Suspect]
     Indication: CONVULSION
     Dosage: 500MG BY MOUTH 1 IN THE MORNIGN AND 2 AT BEDTIME
     Dates: start: 20100624, end: 20100724

REACTIONS (3)
  - ANTICONVULSANT DRUG LEVEL DECREASED [None]
  - CONVULSION [None]
  - PRODUCT SUBSTITUTION ISSUE [None]
